FAERS Safety Report 9689294 (Version 3)
Quarter: 2013Q4

REPORT INFORMATION
  Report Type: Report from Study
  Country: TH (occurrence: TH)
  Receive Date: 20131114
  Receipt Date: 20131127
  Transmission Date: 20140711
  Serious: Yes (Death, Hospitalization)
  Sender: FDA-Public Use
  Company Number: TH-ROCHE-1234940

PATIENT
  Age: 64 Year
  Sex: Male
  Weight: 78 kg

DRUGS (18)
  1. OBINUTUZUMAB [Suspect]
     Indication: DIFFUSE LARGE B-CELL LYMPHOMA
     Dosage: LAST VOLUME TAKEN 250ML AND LAST DOSE CONCENTRATION 4MG/ML, MOST RECENT DOSE RECEIVED PRIOR TO SAE O
     Route: 042
     Dates: start: 20130531
  2. PREDNISOLONE [Suspect]
     Indication: DIFFUSE LARGE B-CELL LYMPHOMA
     Dosage: LAST DOSE RECEIVED PRIOR TO SAE : 100MG, ON 31/MAY/2013
     Route: 048
     Dates: start: 20130531
  3. CYCLOPHOSPHAMIDE [Suspect]
     Indication: DIFFUSE LARGE B-CELL LYMPHOMA
     Dosage: MOST RECENT DOSE RECEIVED PRIOR TO SAE ONSET : 31/MAY/2013, 1447.5 MG
     Route: 042
     Dates: start: 20130531
  4. VINCRISTINE [Suspect]
     Indication: DIFFUSE LARGE B-CELL LYMPHOMA
     Dosage: INTRAVENOUS PUSH, LAST DOSE RECEIVED PRIOR TO SAE ONSET :  2MG ON 31/MAY/2013
     Route: 042
     Dates: start: 20130531
  5. DOXORUBICIN [Suspect]
     Indication: DIFFUSE LARGE B-CELL LYMPHOMA
     Dosage: MOST RECENT DOSE RECEIVED PRIOR TO SAE ONSET : 31/MAY/2013, 96.5 MG
     Route: 042
     Dates: start: 20130531
  6. NEUPOGEN [Concomitant]
     Indication: NEUTROPENIA
     Route: 065
     Dates: start: 20130611, end: 20130612
  7. GLIBENCLAMIDE [Concomitant]
     Indication: DIABETES MELLITUS
     Route: 065
  8. ENALAPRIL [Concomitant]
     Indication: HYPERTENSION
     Route: 065
  9. BENADRYL (THAILAND) [Concomitant]
     Indication: PREMEDICATION
     Route: 065
     Dates: start: 20130531
  10. ONDANSETRON [Concomitant]
     Indication: PREMEDICATION
     Route: 065
     Dates: start: 20130531
  11. ONDANSETRON [Concomitant]
     Indication: NAUSEA
  12. ONDANSETRON [Concomitant]
     Indication: VOMITING
  13. LORAZEPAM [Concomitant]
     Indication: INSOMNIA
     Route: 065
     Dates: start: 20130607
  14. METFORMIN [Concomitant]
     Indication: DIABETES MELLITUS
     Route: 065
     Dates: start: 20130618
  15. METFORMIN [Concomitant]
     Route: 065
  16. HUMULIN 70/30 [Concomitant]
     Indication: DIABETES MELLITUS
     Route: 065
     Dates: start: 20130608, end: 20130610
  17. MOTILIUM (THAILAND) [Concomitant]
     Indication: GASTRITIS
     Route: 065
     Dates: start: 20130705, end: 20130710
  18. MOTILIUM (THAILAND) [Concomitant]
     Route: 065
     Dates: start: 20130712, end: 20130713

REACTIONS (4)
  - Septic shock [Fatal]
  - Thrombocytopenia [Not Recovered/Not Resolved]
  - Upper gastrointestinal haemorrhage [Recovered/Resolved]
  - Gastritis haemorrhagic [Recovered/Resolved]
